FAERS Safety Report 4847635-X (Version None)
Quarter: 2005Q4

REPORT INFORMATION
  Report Type: 
  Country: None (occurrence: None)
  Receive Date: 20051205
  Receipt Date: 20051121
  Transmission Date: 20060501
  Serious: Yes (Life-Threatening, Hospitalization)
  Sender: FDA-Public Use
  Company Number: 2005153789

PATIENT
  Age: 66 Year
  Sex: Male
  Weight: 46 kg

DRUGS (6)
  1. UNASYN [Suspect]
     Indication: PNEUMONIA BACTERIAL
     Dosage: 6 GRAM (BID), INTRAVENOUS
     Route: 042
     Dates: start: 20050929, end: 20051002
  2. FIRSTCIN (CEFOZOPRAN HYDROCHLORIDE) (CEFOZOPRAN HYDROCHLORIDE) [Suspect]
     Indication: PNEUMONIA BACTERIAL
     Dosage: 2 GRAM (BID), INTRAVENOUS
     Route: 042
     Dates: start: 20051002, end: 20051006
  3. SPARA (SPARFLOXACIN) (SPARFLOXACIN) [Concomitant]
  4. BISOLVON (BROMHEXINE HYDROCHLORIDE) (BROMHEXINE HYDROCHLORIDE) [Concomitant]
  5. HOKUNALIN (TULOBUTEROL) (TULOBUTEROL HYDROCHLORIDE) [Concomitant]
  6. MINOMYCIN (MINOCYCLINE) HYDROCHLORIDE (MINOCYCLINE HYDROCHLORIDE) [Concomitant]

REACTIONS (3)
  - FUNGAL INFECTION [None]
  - INTERSTITIAL LUNG DISEASE [None]
  - PLEURAL EFFUSION [None]
